FAERS Safety Report 10081747 (Version 1)
Quarter: 2014Q2

REPORT INFORMATION
  Report Type: Spontaneous
  Country: GB (occurrence: None)
  Receive Date: 20140414
  Receipt Date: 20140414
  Transmission Date: 20141212
  Serious: Yes (Life-Threatening)
  Sender: FDA-Public Use
  Company Number: GB-MDCO-14-00098

PATIENT
  Age: 53 Year
  Sex: Male
  Weight: 95 kg

DRUGS (9)
  1. ANGIOX [Suspect]
     Indication: PRODUCT USED FOR UNKNOWN INDICATION
     Route: 042
     Dates: start: 20140325, end: 20140325
  2. TICAGRELOR (TICAGRELOR) [Suspect]
     Indication: PRODUCT USED FOR UNKNOWN INDICATION
     Route: 048
     Dates: start: 20140325
  3. VISIPAQUE (IODIXANOL) [Suspect]
     Indication: SCAN WITH CONTRAST
     Dates: start: 20140325, end: 20140325
  4. ASPIRIN (ACETYLSALICYLIC ACID) [Concomitant]
  5. ATENOLOL (ATENOLOL) [Concomitant]
  6. ATORVASTATIN (ATORVASTATIN) [Concomitant]
  7. ISOSORBIDE (ISOSORBIDE) [Concomitant]
  8. LANSOPRAZOLE (LANSOPRAZOLE) [Concomitant]
  9. RAMIPRIL (RAMIPRIL) [Concomitant]

REACTIONS (3)
  - Pruritus [None]
  - Rash erythematous [None]
  - Swelling face [None]
